FAERS Safety Report 19066754 (Version 2)
Quarter: 2021Q1

REPORT INFORMATION
  Report Type: Spontaneous
  Country: US (occurrence: US)
  Receive Date: 20210329
  Receipt Date: 20210331
  Transmission Date: 20210420
  Serious: No
  Sender: FDA-Public Use
  Company Number: US-ORGANON-O2103USA001897

PATIENT
  Age: 20 Year
  Sex: Female

DRUGS (1)
  1. NEXPLANON [Suspect]
     Active Substance: ETONOGESTREL
     Dosage: 1 DOSAGE FORM, IN LEFT UPPER ARM
     Route: 059
     Dates: start: 20210309

REACTIONS (4)
  - Implant site erythema [Recovered/Resolved]
  - Implant site cellulitis [Recovered/Resolved]
  - Implant site swelling [Recovered/Resolved]
  - Implant site warmth [Recovered/Resolved]

NARRATIVE: CASE EVENT DATE: 20210314
